FAERS Safety Report 7389017-5 (Version None)
Quarter: 2011Q2

REPORT INFORMATION
  Report Type: 
  Country: None (occurrence: None)
  Receive Date: 20110401
  Receipt Date: 20110331
  Transmission Date: 20111010
  Serious: Yes (Life-Threatening, Hospitalization, Other)
  Sender: FDA-Public Use
  Company Number: AU-PFIZER INC-AU-WYE-G05289510

PATIENT
  Sex: Male

DRUGS (6)
  1. HALOPERIDOL [Suspect]
     Dosage: 7.5MG TO 12.5MG DAILY ONCE A DAY
     Route: 064
  2. FOLIC ACID [Concomitant]
     Route: 064
  3. ZOLOFT [Interacting]
     Dosage: 50 MG, 1X/DAY
     Route: 064
  4. QUETIAPINE [Interacting]
     Dosage: 1 IN 1 DAY
     Route: 064
  5. ELEVIT PRONATAL [Concomitant]
     Route: 064
  6. EFFEXOR XR [Interacting]
     Dosage: 300 MG, 1X/DAY
     Route: 065

REACTIONS (11)
  - NEONATAL RESPIRATORY DISTRESS SYNDROME [None]
  - DRUG WITHDRAWAL SYNDROME NEONATAL [None]
  - PREMATURE BABY [None]
  - FEEDING DISORDER NEONATAL [None]
  - RESPIRATORY DEPRESSION [None]
  - NEONATAL RESPIRATORY FAILURE [None]
  - TREMOR NEONATAL [None]
  - IRRITABILITY [None]
  - DRUG EXPOSURE DURING PREGNANCY [None]
  - JAUNDICE NEONATAL [None]
  - DRUG INTERACTION [None]
